FAERS Safety Report 14918326 (Version 1)
Quarter: 2018Q2

REPORT INFORMATION
  Report Type: Spontaneous
  Country: US (occurrence: US)
  Receive Date: 20180521
  Receipt Date: 20180521
  Transmission Date: 20180711
  Serious: Yes (Hospitalization)
  Sender: FDA-Public Use
  Company Number: PHHY2018US006089

PATIENT
  Age: 57 Year
  Sex: Male

DRUGS (2)
  1. ATROPINE 1% [Suspect]
     Active Substance: ATROPINE
     Indication: DENTAL OPERATION
     Dosage: 113 MG, UNK
     Route: 060
  2. LORAZEPAM. [Concomitant]
     Active Substance: LORAZEPAM
     Indication: PRODUCT USED FOR UNKNOWN INDICATION
     Dosage: 1 MG, BID
     Route: 065

REACTIONS (12)
  - Pupillary reflex impaired [Recovered/Resolved]
  - Bladder dilatation [Recovered/Resolved]
  - Incorrect dose administered [Unknown]
  - Confusional state [Recovered/Resolved]
  - Accidental overdose [Unknown]
  - Dysarthria [Recovered/Resolved]
  - Tachycardia [Recovered/Resolved]
  - Delirium [Recovered/Resolved]
  - Dyskinesia [Recovered/Resolved]
  - Mucosal dryness [Recovered/Resolved]
  - Off label use [Unknown]
  - Drug administration error [Unknown]
